FAERS Safety Report 7502760-X (Version None)
Quarter: 2011Q2

REPORT INFORMATION
  Report Type: 
  Country: None (occurrence: None)
  Receive Date: 20110518
  Receipt Date: 20110503
  Transmission Date: 20111010
  Serious: Yes (Other)
  Sender: FDA-Public Use
  Company Number: FK201100932

PATIENT
  Age: 51 Year
  Sex: Female

DRUGS (2)
  1. FLUOROURACIL [Concomitant]
  2. CISPLATIN [Suspect]
     Indication: ANAL CANCER

REACTIONS (6)
  - AGITATION [None]
  - APRAXIA [None]
  - CONFUSIONAL STATE [None]
  - HALLUCINATION, VISUAL [None]
  - MARCHIAFAVA-BIGNAMI DISEASE [None]
  - APHASIA [None]
